FAERS Safety Report 5590763-4 (Version None)
Quarter: 2008Q1

REPORT INFORMATION
  Report Type: 
  Country: None (occurrence: None)
  Receive Date: 20080114
  Receipt Date: 20080103
  Transmission Date: 20080703
  Serious: Yes (Other)
  Sender: FDA-Public Use
  Company Number: BR-PFIZER INC-2008001985

PATIENT
  Sex: Female
  Weight: 57 kg

DRUGS (2)
  1. DEPO-PROVERA SUSPENSION/INJ [Suspect]
     Indication: CONTRACEPTION
     Dates: start: 19960101, end: 19960101
  2. SALBUTAMOL SULFATE [Concomitant]
     Indication: ASTHMA

REACTIONS (4)
  - AMENORRHOEA [None]
  - ASTHMA [None]
  - HYPERTENSION [None]
  - WEIGHT INCREASED [None]
